FAERS Safety Report 12868351 (Version 2)
Quarter: 2016Q4

REPORT INFORMATION
  Report Type: Spontaneous
  Country: US (occurrence: US)
  Receive Date: 20161020
  Receipt Date: 20161213
  Transmission Date: 20170207
  Serious: No
  Sender: FDA-Public Use
  Company Number: US-ROCHE-1824462

PATIENT

DRUGS (3)
  1. CATHFLO ACTIVASE [Suspect]
     Active Substance: ALTEPLASE
     Indication: PRODUCT USED FOR UNKNOWN INDICATION
     Route: 065
  2. TNKASE [Suspect]
     Active Substance: TENECTEPLASE
     Indication: PRODUCT USED FOR UNKNOWN INDICATION
     Route: 065
  3. TNKASE [Suspect]
     Active Substance: TENECTEPLASE
     Indication: PRODUCT USED FOR UNKNOWN INDICATION

REACTIONS (3)
  - No adverse event [Unknown]
  - Incorrect product storage [Unknown]
  - Circumstance or information capable of leading to medication error [Unknown]
